FAERS Safety Report 6527346-5 (Version None)
Quarter: 2010Q1

REPORT INFORMATION
  Report Type: 
  Country: None (occurrence: None)
  Receive Date: 20100104
  Receipt Date: 20100104
  Transmission Date: 20100710
  Serious: No
  Sender: FDA-Public Use
  Company Number: None

PATIENT
  Age: 60 Year
  Sex: Female
  Weight: 72.5755 kg

DRUGS (2)
  1. LEVAQUIN [Suspect]
     Indication: H1N1 INFLUENZA
     Dosage: 500MG DAILY IV DRIP
     Route: 041
     Dates: start: 20090904, end: 20091001
  2. LEVAQUIN [Suspect]
     Indication: PNEUMONIA
     Dosage: 500MG DAILY IV DRIP
     Route: 041
     Dates: start: 20090904, end: 20091001

REACTIONS (1)
  - PAIN IN EXTREMITY [None]
